FAERS Safety Report 5131740-7 (Version None)
Quarter: 2006Q4

REPORT INFORMATION
  Report Type: 
  Country: None (occurrence: None)
  Receive Date: 20061013
  Receipt Date: 20061003
  Transmission Date: 20070319
  Serious: Yes (Hospitalization)
  Sender: FDA-Public Use
  Company Number: HQWYE864210OCT06

PATIENT
  Age: 40 Year
  Sex: Female

DRUGS (4)
  1. ADVIL [Suspect]
     Indication: DRUG USE FOR UNKNOWN INDICATION
     Dosage: AS NEEDED ORAL
     Route: 048
     Dates: end: 20060401
  2. DESLORATADINE [Suspect]
     Indication: DRUG USE FOR UNKNOWN INDICATION
     Dosage: UNKNOWN ORAL
     Route: 048
     Dates: end: 20060401
  3. ARKOGELULES PENSEE SAUVAGE (VIOLA TRICOLOR, ) [Suspect]
     Indication: DRUG USE FOR UNKNOWN INDICATION
     Dosage: 4 CAPSULE 1X PER 1 DAY ORAL
     Route: 048
     Dates: start: 20060323, end: 20060407
  4. SUPRADYN (FEROUS CARBONATE/MAGNESIUM PHOSPHATE MONOBASDIC/MANGANESE SU [Suspect]
     Indication: DRUG USE FOR UNKNOWN INDICATION
     Dosage: 1 TABLET DAILY ORAL
     Route: 048
     Dates: start: 20060401, end: 20060410

REACTIONS (5)
  - CHOLESTASIS [None]
  - CONCOMITANT DISEASE PROGRESSION [None]
  - HEPATIC CIRRHOSIS [None]
  - HEPATIC NECROSIS [None]
  - HEPATITIS ACUTE [None]
